FAERS Safety Report 8810762 (Version 1)
Quarter: 2012Q4

REPORT INFORMATION
  Report Type: 
  Country: US (occurrence: US)
  Receive Date: 20120927
  Receipt Date: 20120927
  Transmission Date: 20130627
  Serious: No
  Sender: FDA-Public Use
  Company Number: US-PFIZER INC-2012228747

PATIENT
  Age: 65 Year
  Sex: Male
  Weight: 95.24 kg

DRUGS (10)
  1. LIPITOR [Suspect]
     Indication: BLOOD CHOLESTEROL ABNORMAL
     Dosage: 10 mg, 1x/day
     Route: 048
     Dates: start: 1980, end: 2010
  2. COREG [Concomitant]
     Indication: HYPERTENSION
     Dosage: 12.5 mg, 2x/day
  3. COZAAR [Concomitant]
     Indication: HYPERTENSION
     Dosage: 100 mg, 1x/day
  4. JANUVIA [Concomitant]
     Indication: DIABETES MELLITUS
     Dosage: 100 mg, 1x/day
  5. AMARYL [Concomitant]
     Indication: DIABETES MELLITUS
     Dosage: 8 mg, 1x/day
  6. VITAMIN C [Concomitant]
     Dosage: UNK
  7. VITAMIN D [Concomitant]
     Dosage: UNK
  8. VITAMIN B COMPLEX [Concomitant]
     Dosage: UNK
  9. ZINC [Concomitant]
     Dosage: UNK
  10. CHROMIUM [Concomitant]
     Dosage: UNK

REACTIONS (2)
  - Blood creatine phosphokinase increased [Unknown]
  - Muscular weakness [Not Recovered/Not Resolved]
